FAERS Safety Report 8390534-X (Version None)
Quarter: 2012Q2

REPORT INFORMATION
  Report Type: 
  Country: None (occurrence: None)
  Receive Date: 20120529
  Receipt Date: 20120426
  Transmission Date: 20120825
  Serious: Yes (Other)
  Sender: FDA-Public Use
  Company Number: US-PFIZER INC-2012124907

PATIENT
  Age: 65 Year
  Sex: Female

DRUGS (1)
  1. PREMPHASE 14/14 [Suspect]
     Dosage: 0.625/5

REACTIONS (3)
  - UTERINE CYST [None]
  - WEIGHT INCREASED [None]
  - BLOOD FOLLICLE STIMULATING HORMONE DECREASED [None]
